FAERS Safety Report 6835379-4 (Version None)
Quarter: 2010Q2

REPORT INFORMATION
  Report Type: 
  Country: None (occurrence: None)
  Receive Date: 20100520
  Receipt Date: 20090514
  Transmission Date: 20101027
  Serious: Yes (Other)
  Sender: FDA-Public Use
  Company Number: 2009214439

PATIENT
  Age: 63 Year
  Sex: Female

DRUGS (10)
  1. PROVERA [Suspect]
     Indication: HORMONE REPLACEMENT THERAPY
     Dosage: ORAL
     Route: 048
     Dates: start: 19900101, end: 19971001
  2. PROVERA [Suspect]
     Indication: MENOPAUSE
     Dosage: ORAL
     Route: 048
     Dates: start: 19900101, end: 19971001
  3. ORTHO-EST [Suspect]
     Indication: HORMONE REPLACEMENT THERAPY
     Dates: start: 19931001, end: 19971001
  4. ORTHO-EST [Suspect]
     Indication: MENOPAUSE
     Dates: start: 19931001, end: 19971001
  5. PREMARIN [Suspect]
     Indication: HORMONE REPLACEMENT THERAPY
     Dates: start: 19920101, end: 19920101
  6. PREMARIN [Suspect]
     Indication: MENOPAUSE
     Dates: start: 19920101, end: 19920101
  7. ESTRACE [Suspect]
     Indication: HORMONE REPLACEMENT THERAPY
     Dates: start: 19911101, end: 19911201
  8. ESTRACE [Suspect]
     Indication: MENOPAUSE
     Dates: start: 19911101, end: 19911201
  9. PREMPRO [Suspect]
     Indication: HORMONE REPLACEMENT THERAPY
     Dates: start: 19960101, end: 19960101
  10. PREMPRO [Suspect]
     Indication: MENOPAUSE
     Dates: start: 19960101, end: 19960101

REACTIONS (1)
  - BREAST CANCER [None]
